FAERS Safety Report 6195044-6 (Version None)
Quarter: 2009Q2

REPORT INFORMATION
  Report Type: 
  Country: None (occurrence: None)
  Receive Date: 20090515
  Receipt Date: 20090515
  Transmission Date: 20091009
  Serious: Yes (Life-Threatening, Other)
  Sender: FDA-Public Use
  Company Number: None

PATIENT
  Age: 54 Year
  Sex: Female
  Weight: 53.0709 kg

DRUGS (2)
  1. TOPIRAMATE [Suspect]
     Indication: EPILEPSY
     Dosage: 50MG 2TD
     Dates: start: 20090415, end: 20090502
  2. TOPIRAMATE [Suspect]
     Indication: MIGRAINE
     Dosage: 50MG 2TD
     Dates: start: 20090415, end: 20090502

REACTIONS (3)
  - CLONIC CONVULSION [None]
  - MYOCLONIC EPILEPSY [None]
  - PRODUCT SUBSTITUTION ISSUE [None]
